FAERS Safety Report 9115440 (Version 1)
Quarter: 2013Q1

REPORT INFORMATION
  Report Type: Spontaneous
  Country: US (occurrence: US)
  Receive Date: 20130225
  Receipt Date: 20130225
  Transmission Date: 20140127
  Serious: Yes (Hospitalization)
  Sender: FDA-Public Use
  Company Number: US-ASTRAZENECA-2013SE10730

PATIENT
  Age: 81 Year
  Sex: Female
  Weight: 52.2 kg

DRUGS (8)
  1. ATENOLOL [Suspect]
     Indication: HYPERTENSION
     Route: 048
     Dates: start: 2008
  2. NEXIUM [Suspect]
     Indication: GASTROOESOPHAGEAL REFLUX DISEASE
     Route: 048
     Dates: start: 2008
  3. LISINOPRIL [Suspect]
     Indication: HYPERTENSION
     Dosage: 5 MG ONCE
     Route: 048
     Dates: start: 2010
  4. NORVASC [Concomitant]
     Indication: HYPERTENSION
     Dosage: 5 MG ONCE
     Route: 048
     Dates: start: 2010
  5. XANAX [Concomitant]
     Indication: ANXIETY
     Route: 048
  6. XANAX [Concomitant]
     Indication: PANIC ATTACK
     Route: 048
  7. TYLENOL [Concomitant]
     Indication: PAIN
     Route: 048
  8. B12 [Concomitant]
     Indication: BLOOD COUNT ABNORMAL
     Route: 048

REACTIONS (6)
  - Pain in extremity [Recovered/Resolved]
  - Chest pain [Recovered/Resolved]
  - Hernia pain [Unknown]
  - Abdominal pain upper [Recovered/Resolved]
  - Body height decreased [Unknown]
  - Blood count abnormal [Unknown]
